FAERS Safety Report 5003560-5 (Version None)
Quarter: 2006Q2

REPORT INFORMATION
  Report Type: 
  Country: None (occurrence: None)
  Receive Date: 20060511
  Receipt Date: 20060427
  Transmission Date: 20061013
  Serious: Yes (Death, Life-Threatening, Hospitalization)
  Sender: FDA-Public Use
  Company Number: NZ-2006-006857

PATIENT
  Age: 62 Year
  Sex: Male
  Weight: 54.6 kg

DRUGS (7)
  1. FLUDARABINE PHOSPHATE [Suspect]
     Indication: CHRONIC LYMPHOCYTIC LEUKAEMIA
     Dosage: 40 MG, CYCLE, INTRAVENOUS
     Route: 042
     Dates: start: 20060306, end: 20060308
  2. CYCLOPHOSPHAMIDE [Suspect]
     Indication: CHRONIC LYMPHOCYTIC LEUKAEMIA
     Dosage: 400 MG, CYCLE, INTRAVENOUS
     Route: 042
     Dates: start: 20060306, end: 20060308
  3. CO-TRIMOXAZOLE (CO-TRIMOXAZOLE) [Concomitant]
  4. NYSTATIN [Concomitant]
  5. ACYCLOVIR [Concomitant]
  6. AMITRIPTYLINE HCL [Concomitant]
  7. GABAPENTIN [Concomitant]

REACTIONS (6)
  - ANXIETY [None]
  - CHRONIC OBSTRUCTIVE PULMONARY DISEASE [None]
  - CHRONIC RESPIRATORY DISEASE [None]
  - HAEMODIALYSIS [None]
  - RENAL FAILURE ACUTE [None]
  - TUMOUR LYSIS SYNDROME [None]
